FAERS Safety Report 18550434 (Version 4)
Quarter: 2020Q4

REPORT INFORMATION
  Report Type: Report from Study
  Country: DO (occurrence: DO)
  Receive Date: 20201126
  Receipt Date: 20201226
  Transmission Date: 20210114
  Serious: Yes (Hospitalization, Other)
  Sender: FDA-Public Use
  Company Number: DO-JNJFOC-20201131971

PATIENT
  Age: 20 Year
  Sex: Male
  Weight: 44.5 kg

DRUGS (1)
  1. STELARA [Suspect]
     Active Substance: USTEKINUMAB
     Indication: CROHN^S DISEASE
     Route: 058
     Dates: start: 20200108

REACTIONS (6)
  - Purulent discharge [Not Recovered/Not Resolved]
  - Pyrexia [Recovered/Resolved]
  - Intestinal obstruction [Unknown]
  - Vomiting [Unknown]
  - Crohn^s disease [Not Recovered/Not Resolved]
  - Anaemia [Unknown]

NARRATIVE: CASE EVENT DATE: 202010
